FAERS Safety Report 24716693 (Version 1)
Quarter: 2024Q4

REPORT INFORMATION
  Report Type: Spontaneous
  Country: US (occurrence: None)
  Receive Date: 20241208
  Receipt Date: 20241208
  Transmission Date: 20250115
  Serious: Yes (Other)
  Sender: Public
  Company Number: None

PATIENT
  Age: 41 Year
  Sex: Female
  Weight: 64.86 kg

DRUGS (4)
  1. PARAGARD T 380A [Suspect]
     Active Substance: COPPER
  2. RIZATRIPTAN [Concomitant]
     Active Substance: RIZATRIPTAN
  3. Odadenstron [Concomitant]
  4. MELATONIN [Concomitant]
     Active Substance: MELATONIN

REACTIONS (3)
  - Migraine [None]
  - Motion sickness [None]
  - Therapy cessation [None]

NARRATIVE: CASE EVENT DATE: 20210704
